FAERS Safety Report 6997466-X (Version None)
Quarter: 2010Q3

REPORT INFORMATION
  Report Type: 
  Country: None (occurrence: None)
  Receive Date: 20100918
  Receipt Date: 20091020
  Transmission Date: 20110219
  Serious: No
  Sender: FDA-Public Use
  Company Number: US-WYE-H11775709

PATIENT
  Sex: Female
  Weight: 60.84 kg

DRUGS (6)
  1. PRISTIQ [Suspect]
     Route: 048
     Dates: start: 20091009, end: 20091009
  2. PRISTIQ [Suspect]
     Route: 048
     Dates: start: 20091019, end: 20091019
  3. IRON [Concomitant]
  4. LEVOTHYROXINE SODIUM [Concomitant]
  5. SINGULAIR [Concomitant]
  6. HYDROCODONE [Concomitant]

REACTIONS (4)
  - DYSPHAGIA [None]
  - DYSURIA [None]
  - MUSCLE TIGHTNESS [None]
  - PAIN IN JAW [None]
